FAERS Safety Report 17025415 (Version 2)
Quarter: 2019Q4

REPORT INFORMATION
  Report Type: Spontaneous
  Country: BE (occurrence: BE)
  Receive Date: 20191113
  Receipt Date: 20191129
  Transmission Date: 20200122
  Serious: No
  Sender: FDA-Public Use
  Company Number: BE-ASTELLAS-2019US040822

PATIENT
  Age: 77 Year
  Sex: Male

DRUGS (1)
  1. BETMIGA [Suspect]
     Active Substance: MIRABEGRON
     Indication: HYPERTONIC BLADDER
     Dosage: 50 MG, ONCE DAILY (IN MORNING)
     Route: 048

REACTIONS (1)
  - Drug ineffective [Unknown]
